FAERS Safety Report 14944272 (Version 1)
Quarter: 2018Q2

REPORT INFORMATION
  Report Type: Spontaneous
  Country: LS (occurrence: LS)
  Receive Date: 20180528
  Receipt Date: 20180528
  Transmission Date: 20180711
  Serious: Yes (Other)
  Sender: FDA-Public Use
  Company Number: PHHY2018LS006499

PATIENT
  Age: 54 Year
  Sex: Male
  Weight: 52 kg

DRUGS (8)
  1. COTRIMAXAZOLE [Concomitant]
     Active Substance: SULFAMETHOXAZOLE\TRIMETHOPRIM
     Indication: HIV INFECTION
     Dosage: UNK
     Route: 065
     Dates: start: 20180126
  2. MULTIPLE VITAMINS [Concomitant]
     Active Substance: VITAMINS
     Indication: NUTRITIONAL SUPPLEMENTATION
     Dosage: UNK
     Route: 065
     Dates: start: 20180208
  3. PYRAZINAMIDE. [Suspect]
     Active Substance: PYRAZINAMIDE
     Indication: TUBERCULOSIS
     Dosage: 1600 MG, QD
     Route: 048
     Dates: start: 20180208
  4. BEDAQUILINE [Suspect]
     Active Substance: BEDAQUILINE
     Indication: TUBERCULOSIS
     Dosage: 400 MG, QD
     Route: 048
     Dates: start: 20180208
  5. CLOFAZIMINE [Suspect]
     Active Substance: CLOFAZIMINE
     Indication: TUBERCULOSIS
     Dosage: 200 MG, QD
     Route: 048
     Dates: start: 20180208
  6. PROTHIONAMIDE [Suspect]
     Active Substance: PROTIONAMIDE
     Indication: TUBERCULOSIS
     Dosage: 500 MG, QD
     Route: 048
     Dates: start: 20180208
  7. LINEZOLID. [Suspect]
     Active Substance: LINEZOLID
     Indication: TUBERCULOSIS
     Dosage: 600 MG, QD
     Route: 048
     Dates: start: 20180208, end: 20180216
  8. DELAMANID [Suspect]
     Active Substance: DELAMANID
     Indication: TUBERCULOSIS
     Dosage: 200 MG, QD
     Route: 048
     Dates: start: 20180208

REACTIONS (1)
  - Thrombocytopenia [Unknown]

NARRATIVE: CASE EVENT DATE: 201802
